FAERS Safety Report 6297792-6 (Version None)
Quarter: 2009Q3

REPORT INFORMATION
  Report Type: 
  Country: None (occurrence: None)
  Receive Date: 20090805
  Receipt Date: 20090724
  Transmission Date: 20100115
  Serious: Yes (Other)
  Sender: FDA-Public Use
  Company Number: JP-PFIZER INC-2009189301

PATIENT
  Age: 37 Year
  Sex: Female

DRUGS (3)
  1. FARMORUBICIN [Suspect]
     Indication: BREAST CANCER
     Dosage: 120 MG, EVERY 3 WEEKS (TDD: 120 MG/3 WEEKS)
     Route: 042
     Dates: start: 20070611, end: 20070821
  2. FLUOROURACIL [Suspect]
     Indication: BREAST CANCER
     Dosage: 750 MG, EVERY 3 WEEKS (TDD: 750 MG/3WEEKS)
     Route: 042
     Dates: start: 20070611, end: 20070821
  3. ENDOXAN [Suspect]
     Indication: BREAST CANCER
     Dosage: 750 MG, EVERY 3 WEEKS (TDD: 750 MG/3 WEEKS)
     Route: 042
     Dates: start: 20070611, end: 20070821

REACTIONS (1)
  - HEPATIC FUNCTION ABNORMAL [None]
